FAERS Safety Report 5655932-3 (Version None)
Quarter: 2008Q1

REPORT INFORMATION
  Report Type: 
  Country: None (occurrence: None)
  Receive Date: 20080307
  Receipt Date: 20080229
  Transmission Date: 20080703
  Serious: Yes (Death)
  Sender: FDA-Public Use
  Company Number: TR-BOEHRINGER INGELHEIM GMBH, GERMANY-2008-DE-01295GD

PATIENT
  Age: 42 Year
  Sex: Male

DRUGS (3)
  1. RANITIDINE [Suspect]
     Indication: PEMPHIGUS
  2. METHYLPREDNISOLONE [Suspect]
     Indication: PEMPHIGUS
  3. HYDROTALCID [Concomitant]
     Indication: PEMPHIGUS

REACTIONS (2)
  - ENCEPHALITIS [None]
  - LISTERIOSIS [None]
